FAERS Safety Report 8581799-X (Version None)
Quarter: 2012Q3

REPORT INFORMATION
  Report Type: 
  Country: None (occurrence: None)
  Receive Date: 20120809
  Receipt Date: 20120807
  Transmission Date: 20120928
  Serious: Yes (Death)
  Sender: FDA-Public Use
  Company Number: PHHY2012BR068668

PATIENT
  Sex: Male

DRUGS (2)
  1. DIOVAN HCT [Suspect]
     Dosage: 1 DF (160/25 MG), UNK
  2. DIOVAN HCT [Suspect]
     Dosage: 1 DF (320/25 MG), UNK

REACTIONS (2)
  - HYPERTENSION [None]
  - INTRACRANIAL ANEURYSM [None]
